FAERS Safety Report 6619240-6 (Version None)
Quarter: 2010Q1

REPORT INFORMATION
  Report Type: 
  Country: None (occurrence: None)
  Receive Date: 20100301
  Receipt Date: 20100216
  Transmission Date: 20100710
  Serious: Yes (Hospitalization)
  Sender: FDA-Public Use
  Company Number: 230887J10USA

PATIENT
  Age: 48 Year
  Sex: Female
  Weight: 108 kg

DRUGS (6)
  1. REBIF [Suspect]
     Indication: MULTIPLE SCLEROSIS
     Dosage: 44 MCG, 3 IN 1 WEEKS,  SUBCUTANEOUS
     Route: 058
     Dates: start: 20030913, end: 20090701
  2. NOVANTRONE [Suspect]
     Indication: MULTIPLE SCLEROSIS
     Dates: start: 20080101, end: 20081101
  3. BLOOD PRESSURE MEDICATION (ANTIHYPERTENSIVES) [Concomitant]
  4. ZOCOR [Concomitant]
  5. BACLOFEN [Concomitant]
  6. VESICARE [Concomitant]

REACTIONS (4)
  - ABSCESS INTESTINAL [None]
  - DIVERTICULITIS [None]
  - HYSTERECTOMY [None]
  - UTERINE CANCER [None]
